APPROVED DRUG PRODUCT: FUROSEMIDE
Active Ingredient: FUROSEMIDE
Strength: 10MG/ML **Federal Register determination that product was not discontinued or withdrawn for safety or effectiveness reasons**
Dosage Form/Route: INJECTABLE;INJECTION
Application: N018579 | Product #001
Applicant: AMERICAN REGENT INC
Approved: Nov 30, 1983 | RLD: Yes | RS: No | Type: DISCN